FAERS Safety Report 18319071 (Version 2)
Quarter: 2020Q3

REPORT INFORMATION
  Report Type: Spontaneous
  Country: US (occurrence: US)
  Receive Date: 20200928
  Receipt Date: 20200929
  Transmission Date: 20201103
  Serious: Yes (Other)
  Sender: FDA-Public Use
  Company Number: US-PFIZER INC-2020368300

PATIENT
  Age: 32 Year
  Sex: Female

DRUGS (11)
  1. CISPLATIN. [Suspect]
     Active Substance: CISPLATIN
     Indication: OVARIAN CANCER
     Dosage: 90 MG/M2, CYCLIC (DAY #1, OVER 4 H)
  2. MELPHALAN. [Suspect]
     Active Substance: MELPHALAN
     Indication: OVARIAN CANCER
     Dosage: 100 MG/M2, DAILY (ON DAYS ?5 AND ?4)
  3. BLEOMYCIN SULFATE [Suspect]
     Active Substance: BLEOMYCIN SULFATE
     Indication: OVARIAN CANCER
     Dosage: UNK, CYCLIC (DAY #2, 15 UNITS/M2 OVER 10 MIN)
  4. VINBLASTINE [Suspect]
     Active Substance: VINBLASTINE
     Indication: OVARIAN CANCER
     Dosage: 6 MG/M2, CYCLIC (DAY #1, OVER 5 MIN)
  5. DEXRAZOXANE. [Suspect]
     Active Substance: DEXRAZOXANE
     Indication: OVARIAN CANCER
     Dosage: 450 MG/M2, CYCLIC (DAY #3)
  6. MANNITOL. [Suspect]
     Active Substance: MANNITOL
     Indication: OVARIAN CANCER
     Dosage: UNK (CONTINUOUS INTRAVENOUS FLUIDS (INCLUDING MANNITOL PRIOR TO CISPLATIN))
     Route: 042
  7. BUSULFAN. [Suspect]
     Active Substance: BUSULFAN
     Indication: OVARIAN CANCER
     Dosage: UNK (IS GIVEN EVERY 24 H FOR THREE DAYS (DAY ?8 TO ?6))
  8. CYCLOPHOSPHAMIDE. [Suspect]
     Active Substance: CYCLOPHOSPHAMIDE
     Indication: OVARIAN CANCER
     Dosage: 1000 MG/M2, CYCLIC (DAY #2, OVER 60 MIN)
  9. ETOPOSIDE. [Suspect]
     Active Substance: ETOPOSIDE
     Indication: OVARIAN CANCER
     Dosage: 200 MG/M2, CYCLIC (DAY #3, OVER 120 MIN)
  10. THIOTEPA. [Suspect]
     Active Substance: THIOTEPA
     Indication: OVARIAN CANCER
     Dosage: 500 MG/M2, DAILY (ON DAYS ?3 AND ?2)
  11. DOXORUBICIN HCL [Suspect]
     Active Substance: DOXORUBICIN HYDROCHLORIDE
     Indication: OVARIAN CANCER
     Dosage: 45 MG/M2, CYCLIC (DAY #3, OVER 15 MIN)

REACTIONS (1)
  - Premature menopause [Unknown]
